FAERS Safety Report 8289773-8 (Version None)
Quarter: 2012Q2

REPORT INFORMATION
  Report Type: 
  Country: None (occurrence: None)
  Receive Date: 20120417
  Receipt Date: 20120413
  Transmission Date: 20120825
  Serious: No
  Sender: FDA-Public Use
  Company Number: US-PFIZER INC-2012092882

PATIENT
  Sex: Male
  Weight: 122.45 kg

DRUGS (2)
  1. LYRICA [Suspect]
     Indication: NEUROPATHY PERIPHERAL
     Dosage: 100 MG, 1X/DAY
     Route: 048
  2. LYRICA [Suspect]
     Indication: SCIATICA
     Dosage: 50 MG, 1X/DAY
     Route: 048
     Dates: start: 20070101

REACTIONS (1)
  - DRUG INEFFECTIVE [None]
